FAERS Safety Report 5306015-3 (Version None)
Quarter: 2007Q2

REPORT INFORMATION
  Report Type: 
  Country: None (occurrence: None)
  Receive Date: 20070424
  Receipt Date: 20070412
  Transmission Date: 20071010
  Serious: Yes (Hospitalization)
  Sender: FDA-Public Use
  Company Number: GB-ROCHE-473851

PATIENT
  Age: 43 Year
  Sex: Male

DRUGS (21)
  1. SAQUINAVIR FORMULATION UNKNOWN [Suspect]
     Route: 048
     Dates: start: 19980401
  2. CYCLOPHOSPHAMIDE [Suspect]
     Indication: BURKITT'S LYMPHOMA
     Route: 042
     Dates: start: 19980615, end: 19980915
  3. CYTARABINE [Suspect]
     Indication: BURKITT'S LYMPHOMA
     Route: 037
     Dates: start: 19980401, end: 19980901
  4. DOXORUBICIN HCL [Suspect]
     Indication: BURKITT'S LYMPHOMA
     Route: 042
     Dates: start: 19980615, end: 19980915
  5. HYDROCORTISONE [Suspect]
     Indication: BURKITT'S LYMPHOMA
     Route: 048
     Dates: start: 19980401, end: 19980901
  6. METHOTREXATE [Suspect]
     Indication: BURKITT'S LYMPHOMA
     Route: 037
     Dates: start: 19980401, end: 19980901
  7. PREDNISOLONE [Suspect]
     Indication: BURKITT'S LYMPHOMA
     Route: 048
     Dates: start: 19980401, end: 19980901
  8. RITONAVIR [Suspect]
     Route: 048
     Dates: start: 19980401
  9. VINCRISTINE [Suspect]
     Indication: BURKITT'S LYMPHOMA
     Route: 042
     Dates: start: 19980401, end: 19980901
  10. SULFAMETHOXAZOLE [Suspect]
     Route: 048
  11. TRIMETHOPRIM [Suspect]
     Route: 048
     Dates: start: 19961001
  12. CYCLOPHOSPHAMIDE [Concomitant]
     Route: 048
     Dates: start: 19980415, end: 19980915
  13. CYTARABINE [Concomitant]
     Route: 048
     Dates: start: 19980401, end: 19980901
  14. DOXORUBICIN HCL [Concomitant]
     Route: 048
     Dates: start: 19980415, end: 19980915
  15. METHOTREXATE [Concomitant]
     Route: 048
     Dates: start: 19980415, end: 19980915
  16. PREDNISOLONE [Concomitant]
     Route: 048
     Dates: start: 19980415, end: 19980915
  17. RITONAVIR [Concomitant]
     Indication: RETROVIRAL INFECTION
     Route: 048
     Dates: start: 19980415
  18. SAQUINAVIR [Concomitant]
     Indication: RETROVIRAL INFECTION
     Route: 048
     Dates: start: 19980415
  19. TRIMETHOPRIM [Concomitant]
     Route: 048
     Dates: start: 19961001
  20. VINCRISTINE [Concomitant]
     Route: 048
     Dates: start: 19980415, end: 19980915
  21. CO-TRIMOXAZOLE [Concomitant]
     Route: 048

REACTIONS (8)
  - BACK PAIN [None]
  - BLOOD CHOLESTEROL INCREASED [None]
  - BLOOD TRIGLYCERIDES INCREASED [None]
  - OSTEONECROSIS [None]
  - OSTEOPOROSIS [None]
  - PAIN IN EXTREMITY [None]
  - SPINAL COMPRESSION FRACTURE [None]
  - SPINAL FRACTURE [None]
